FAERS Safety Report 21045887 (Version 1)
Quarter: 2022Q3

REPORT INFORMATION
  Report Type: Spontaneous
  Country: GB (occurrence: GB)
  Receive Date: 20220706
  Receipt Date: 20220706
  Transmission Date: 20221026
  Serious: Yes (Other)
  Sender: FDA-Public Use
  Company Number: None

PATIENT
  Age: 64 Year
  Sex: Female
  Weight: 48 kg

DRUGS (4)
  1. CAPECITABINE [Suspect]
     Active Substance: CAPECITABINE
     Indication: Anal cancer stage II
     Dosage: 1300 MG BD
     Dates: start: 20220622, end: 20220627
  2. UMECLIDINIUM [Concomitant]
     Active Substance: UMECLIDINIUM
     Indication: Asthma
  3. FLUTICASONE FUROATE\VILANTEROL TRIFENATATE [Concomitant]
     Active Substance: FLUTICASONE FUROATE\VILANTEROL TRIFENATATE
     Indication: Asthma
  4. VENTOLIN [Concomitant]
     Active Substance: ALBUTEROL SULFATE
     Indication: Asthma

REACTIONS (15)
  - Medication error [Unknown]
  - Nausea [Not Recovered/Not Resolved]
  - Vomiting [Not Recovered/Not Resolved]
  - Coordination abnormal [Not Recovered/Not Resolved]
  - Balance disorder [Not Recovered/Not Resolved]
  - Cough [Not Recovered/Not Resolved]
  - Vertigo [Not Recovered/Not Resolved]
  - Dehydration [Recovering/Resolving]
  - Migraine [Recovering/Resolving]
  - Duodenogastric reflux [Not Recovered/Not Resolved]
  - Rhinorrhoea [Not Recovered/Not Resolved]
  - Eructation [Recovering/Resolving]
  - Flatulence [Recovering/Resolving]
  - Dizziness [Recovering/Resolving]
  - Decreased appetite [Not Recovered/Not Resolved]
